FAERS Safety Report 6442536-8 (Version None)
Quarter: 2009Q4

REPORT INFORMATION
  Report Type: 
  Country: None (occurrence: None)
  Receive Date: 20091112
  Receipt Date: 20091028
  Transmission Date: 20100525
  Serious: Yes (Death, Hospitalization)
  Sender: FDA-Public Use
  Company Number: CLOF-1000751

PATIENT
  Age: 70 Year
  Sex: Female
  Weight: 60 kg

DRUGS (7)
  1. EVOLTRA (CLOFARABINE) SOLUTION FOR INFUSION [Suspect]
     Indication: ACUTE MYELOID LEUKAEMIA
     Dosage: 30 MG/M2, QDX5, INTRAVENOUS
     Route: 042
     Dates: start: 20091005, end: 20091009
  2. CIPROBAY (CIPROFLOXACIN LACTATE) INTRAVENOUS INFUSION [Suspect]
     Indication: DRUG USE FOR UNKNOWN INDICATION
     Dosage: 200, INTRAVENOUS
     Route: 042
     Dates: start: 20091020, end: 20091022
  3. TAZOBAC (TAZOBACTAM SODIUM) INTRAVENOUS INFUSION [Concomitant]
  4. ZIENAM (CILASTATIN SODIUM, IMIPENEM) INTRAVENOUS INFUSION [Concomitant]
  5. METRONIDAZOL (METRONIDAZOLE) ORAL SOLUTION [Concomitant]
  6. VANCOMYCIN (VANCOMYCIN HYDROCHLORIDE) ORAL SOLUTION [Concomitant]
  7. FUROSEMIDE (FUROSEMIDE SODIUM) [Concomitant]

REACTIONS (7)
  - BONE MARROW FAILURE [None]
  - DEHYDRATION [None]
  - DIARRHOEA [None]
  - PAIN [None]
  - RENAL FAILURE ACUTE [None]
  - RENAL TUBULAR DISORDER [None]
  - TREATMENT FAILURE [None]
